FAERS Safety Report 13518397 (Version 2)
Quarter: 2017Q2

REPORT INFORMATION
  Report Type: Spontaneous
  Country: US (occurrence: US)
  Receive Date: 20170505
  Receipt Date: 20170505
  Transmission Date: 20170830
  Serious: No
  Sender: FDA-Public Use
  Company Number: GXBR2017US001221

PATIENT
  Sex: Male
  Weight: 94.33 kg

DRUGS (3)
  1. KLONOPIN [Suspect]
     Active Substance: CLONAZEPAM
     Indication: ANXIETY
     Dosage: 1 MG, TID
     Route: 048
  2. NEO AND POLYMYXIN B SULFATES + DEX [Suspect]
     Active Substance: DEXAMETHASONE\NEOMYCIN SULFATE\POLYMYXIN B SULFATE
     Indication: PRODUCT USED FOR UNKNOWN INDICATION
     Dosage: 2 GTT EACH EYE, QID
     Route: 047
  3. ZOLOFT [Suspect]
     Active Substance: SERTRALINE HYDROCHLORIDE
     Indication: ANGER
     Dosage: 100 MG, QD
     Route: 048

REACTIONS (9)
  - Dizziness [Recovered/Resolved]
  - Nausea [Recovered/Resolved]
  - Oral pain [Recovered/Resolved]
  - Vomiting [Recovered/Resolved]
  - Oropharyngeal pain [Recovered/Resolved]
  - Dry eye [Not Recovered/Not Resolved]
  - Palpitations [Recovered/Resolved]
  - Eye irritation [Not Recovered/Not Resolved]
  - Diplopia [Not Recovered/Not Resolved]
